FAERS Safety Report 24815439 (Version 1)
Quarter: 2025Q1

REPORT INFORMATION
  Report Type: Spontaneous
  Country: FR (occurrence: FR)
  Receive Date: 20250107
  Receipt Date: 20250107
  Transmission Date: 20250408
  Serious: Yes (Hospitalization, Other)
  Sender: MYLAN
  Company Number: None

PATIENT
  Age: 47 Year
  Sex: Male
  Weight: 215 kg

DRUGS (11)
  1. NOREPINEPHRINE [Suspect]
     Active Substance: NOREPINEPHRINE
     Indication: Hypotension
     Dosage: 60 MILLIGRAM, QH (STARTED AT 0.8MG/H)
     Route: 042
     Dates: start: 20241115, end: 20241121
  2. FUROSEMIDE [Suspect]
     Active Substance: FUROSEMIDE
     Indication: Oedema peripheral
     Dosage: 1 DOSAGE FORM, QD
     Route: 048
     Dates: start: 20241117, end: 20241118
  3. METHYLENE BLUE [Suspect]
     Active Substance: METHYLENE BLUE
     Indication: Product used for unknown indication
     Route: 042
     Dates: start: 20241116, end: 20241116
  4. METHYLENE BLUE [Suspect]
     Active Substance: METHYLENE BLUE
     Dosage: 25 MILLIGRAM, QH (BOLUS OF 200MG THEN 25MG/H THEN INCREASE TO 50MG/H)
     Route: 042
     Dates: start: 20241117, end: 20241117
  5. METHYLENE BLUE [Suspect]
     Active Substance: METHYLENE BLUE
     Dosage: 50 MILLIGRAM, QH (BOLUS OF 200MG THEN 25MG/H THEN INCREASE TO 50MG/H)
     Route: 042
     Dates: start: 20241117, end: 20241117
  6. OFLOXACIN [Concomitant]
     Active Substance: OFLOXACIN
     Indication: Product used for unknown indication
     Route: 048
     Dates: start: 20241115, end: 20241115
  7. COVERAM [Concomitant]
     Active Substance: AMLODIPINE\PERINDOPRIL
     Indication: Product used for unknown indication
     Route: 048
     Dates: start: 20241115, end: 20241115
  8. CALCIUM GLUCONATE [Concomitant]
     Active Substance: CALCIUM GLUCONATE
     Indication: Hypocalcaemia
     Route: 042
     Dates: start: 20241115, end: 20241117
  9. INSULIN NOS [Concomitant]
     Active Substance: INSULIN NOS
     Indication: Hyperglycaemia
     Dosage: 50 INTERNATIONAL UNIT, QH
     Route: 042
     Dates: start: 20241115, end: 20241120
  10. ARGIPRESSIN ACETATE [Concomitant]
     Indication: Hypotension
     Route: 042
     Dates: start: 20241115, end: 20241120
  11. BUSPIRONE HYDROCHLORIDE [Concomitant]
     Active Substance: BUSPIRONE HYDROCHLORIDE
     Indication: Anxiety disorder
     Dosage: 5 MILLIGRAM, QD
     Route: 048

REACTIONS (2)
  - Haemolytic anaemia [Not Recovered/Not Resolved]
  - Thrombocytopenia [Not Recovered/Not Resolved]

NARRATIVE: CASE EVENT DATE: 20241117
